FAERS Safety Report 8514736-4 (Version None)
Quarter: 2012Q3

REPORT INFORMATION
  Report Type: 
  Country: None (occurrence: None)
  Receive Date: 20120717
  Receipt Date: 20120709
  Transmission Date: 20120928
  Serious: Yes (Hospitalization)
  Sender: FDA-Public Use
  Company Number: US-BAYER-2012-060839

PATIENT
  Age: 24 Year
  Sex: Female
  Weight: 86 kg

DRUGS (8)
  1. ASCORBIC ACID [Concomitant]
     Route: 048
  2. ACETAMINOPHEN [Concomitant]
  3. DROSPIRENONE AND ETHINYL ESTRADIOL [Suspect]
     Indication: CONTRACEPTION
     Dosage: UNK
     Dates: start: 20110429, end: 20110707
  4. NSAID'S [Concomitant]
     Route: 048
  5. IBUPROFEN [Concomitant]
  6. YAZ [Suspect]
     Indication: CONTRACEPTION
     Dosage: UNK
     Dates: start: 20080923, end: 20090203
  7. NAPROXEN [Concomitant]
  8. MICROGESTIN 1.5/30 [Concomitant]
     Dosage: UNK

REACTIONS (3)
  - PAIN IN EXTREMITY [None]
  - OEDEMA PERIPHERAL [None]
  - DEEP VEIN THROMBOSIS [None]
